FAERS Safety Report 14192246 (Version 1)
Quarter: 2017Q4

REPORT INFORMATION
  Report Type: Spontaneous
  Country: US (occurrence: US)
  Receive Date: 20171115
  Receipt Date: 20171115
  Transmission Date: 20180321
  Serious: Yes (Other)
  Sender: FDA-Public Use
  Company Number: US-VALIDUS PHARMACEUTICALS LLC-US-2017VAL001533

PATIENT
  Sex: Male

DRUGS (5)
  1. ERGOCALCIFEROL. [Suspect]
     Active Substance: ERGOCALCIFEROL
     Indication: PRODUCT USED FOR UNKNOWN INDICATION
     Dosage: 5000 IU, WEEKLY
  2. SEVELAMER [Suspect]
     Active Substance: SEVELAMER
     Indication: HYPERPARATHYROIDISM
     Dosage: 9.6 G, QD
  3. PREDNISONE. [Suspect]
     Active Substance: PREDNISONE
     Indication: PAIN
  4. CINACALCET [Suspect]
     Active Substance: CINACALCET
     Indication: HYPERPARATHYROIDISM
     Dosage: UNK
  5. PARICALCITOL. [Suspect]
     Active Substance: PARICALCITOL
     Indication: HYPERPARATHYROIDISM
     Dosage: UNK

REACTIONS (5)
  - Skin lesion [Unknown]
  - Calciphylaxis [Unknown]
  - Nodule [Unknown]
  - Blood parathyroid hormone increased [Unknown]
  - Drug ineffective [Unknown]

NARRATIVE: CASE EVENT DATE: 201503
